FAERS Safety Report 8441049 (Version 3)
Quarter: 2013Q2

REPORT INFORMATION
  Report Type: Spontaneous
  Country: US (occurrence: None)
  Receive Date: 20120223
  Receipt Date: 20120914
  Transmission Date: 20140414
  Serious: Yes (Hospitalization)
  Sender: FDA-Public Use
  Company Number: JPI-P-019584

PATIENT
  Age: 26 Year
  Sex: Female

DRUGS (4)
  1. XYREM [Suspect]
     Indication: CATAPLEXY
     Dosage: 4.5 GM (2.25 GM,2 IN 1 D),ORAL, 6 GM (3 GM,2 IN 1 D),ORAL
     Route: 048
     Dates: start: 20120127, end: 20120203
  2. LEVALBUTEROL HYDROCHLORIDE [Concomitant]
  3. CICLESONIDE [Concomitant]
  4. MULTIPLE UNSPECIFIED MEDICATIONS [Concomitant]

REACTIONS (13)
  - HEART RATE INCREASED [None]
  - URINE OUTPUT INCREASED [None]
  - POLLAKIURIA [None]
  - SLEEP DISORDER [None]
  - PSYCHOMOTOR HYPERACTIVITY [None]
  - DEPRESSION [None]
  - SUICIDAL IDEATION [None]
  - CONDITION AGGRAVATED [None]
  - Depression [None]
  - Intentional self-injury [None]
  - Muscular weakness [None]
  - Urine output decreased [None]
  - Initial insomnia [None]
